FAERS Safety Report 23488122 (Version 2)
Quarter: 2024Q2

REPORT INFORMATION
  Report Type: Spontaneous
  Country: IT (occurrence: IT)
  Receive Date: 20240206
  Receipt Date: 20240612
  Transmission Date: 20240716
  Serious: Yes (Other)
  Sender: FDA-Public Use
  Company Number: IT-ABBVIE-5626457

PATIENT
  Sex: Male

DRUGS (3)
  1. KETOROLAC TROMETHAMINE [Suspect]
     Active Substance: KETOROLAC TROMETHAMINE
     Indication: Rhegmatogenous retinal detachment
     Dosage: TIME INTERVAL: 0.33333333 DAYS: 0.5%
     Route: 047
  2. BETAMETHASONE [Concomitant]
     Active Substance: BETAMETHASONE\BETAMETHASONE DIPROPIONATE
     Indication: Rhegmatogenous retinal detachment
     Dosage: BETAMETHASONE 0.2%
     Route: 047
  3. CHLORAMPHENICOL [Concomitant]
     Active Substance: CHLORAMPHENICOL
     Indication: Rhegmatogenous retinal detachment
     Dosage: CHLORAMPHENICOL 0.5%
     Route: 047

REACTIONS (1)
  - Neurotrophic keratopathy [Recovered/Resolved]
